FAERS Safety Report 8583051-5 (Version None)
Quarter: 2012Q3

REPORT INFORMATION
  Report Type: 
  Country: None (occurrence: None)
  Receive Date: 20120809
  Receipt Date: 20120803
  Transmission Date: 20120928
  Serious: Yes (Hospitalization)
  Sender: FDA-Public Use
  Company Number: FR-US-EMD SERONO, INC.-7152510

PATIENT
  Age: 39 Year
  Sex: Female

DRUGS (1)
  1. REBIF [Suspect]
     Indication: MULTIPLE SCLEROSIS
     Route: 058
     Dates: start: 20120601, end: 20120701

REACTIONS (5)
  - SUICIDE ATTEMPT [None]
  - FEEDING DISORDER [None]
  - FATIGUE [None]
  - INFLUENZA LIKE ILLNESS [None]
  - NAUSEA [None]
